FAERS Safety Report 9559148 (Version 1)
Quarter: 2013Q3

REPORT INFORMATION
  Report Type: Spontaneous
  Country: CA (occurrence: CA)
  Receive Date: 20130927
  Receipt Date: 20130927
  Transmission Date: 20140515
  Serious: Yes (Life-Threatening, Hospitalization)
  Sender: FDA-Public Use
  Company Number: CA-ROCHE-1280457

PATIENT
  Age: 59 Year
  Sex: Male
  Weight: 83 kg

DRUGS (3)
  1. PEGASYS [Suspect]
     Indication: PRODUCT USED FOR UNKNOWN INDICATION
     Route: 058
  2. NEUPOGEN [Concomitant]
     Route: 042
  3. RIBAVIRIN [Concomitant]
     Route: 048

REACTIONS (5)
  - Aggression [Recovered/Resolved]
  - Agitation [Recovered/Resolved]
  - Confusional state [Recovered/Resolved]
  - Intentional self-injury [Recovered/Resolved]
  - Psychotic disorder [Recovered/Resolved]
